FAERS Safety Report 16556370 (Version 8)
Quarter: 2022Q2

REPORT INFORMATION
  Report Type: Spontaneous
  Country: US (occurrence: US)
  Receive Date: 20190710
  Receipt Date: 20220420
  Transmission Date: 20220721
  Serious: Yes (Death, Life-Threatening, Hospitalization, Other)
  Sender: FDA-Public Use
  Company Number: US-AMGEN-USASP2019107113

PATIENT

DRUGS (13)
  1. PEGFILGRASTIM [Suspect]
     Active Substance: PEGFILGRASTIM
     Indication: Prophylaxis
     Dosage: 6 MILLIGRAM, AFTER CHEMO 3 MILLIGRAM, AFTER CHEMO
     Route: 065
  2. PEGFILGRASTIM [Suspect]
     Active Substance: PEGFILGRASTIM
     Indication: Neutropenia
     Dosage: 3 MILLIGRAM, AFTER CHEMO
     Route: 065
  3. PEGFILGRASTIM [Suspect]
     Active Substance: PEGFILGRASTIM
     Indication: Prophylaxis
     Dosage: 1.5 MILLIGRAM, AFTER CHEMO
     Route: 065
  4. PEGFILGRASTIM [Suspect]
     Active Substance: PEGFILGRASTIM
     Dosage: 6 MILLIGRAM, AFTER CHEMO
     Route: 065
  5. PEGFILGRASTIM [Suspect]
     Active Substance: PEGFILGRASTIM
     Dosage: 6 MILLIGRAM, AFTER CHEMO ON DAY 02 4 CYCLES
     Route: 058
  6. PEGFILGRASTIM [Suspect]
     Active Substance: PEGFILGRASTIM
     Dosage: 6 MILLIGRAM, 24 HOURS AFTER CHEMO
     Route: 058
  7. PLINABULIN [Concomitant]
     Active Substance: PLINABULIN
     Indication: Non-small cell lung cancer
     Dosage: 5, 10 AND 20 MILLIGRAM/SQ. METER, AFTER CHEMO/40 MG
     Route: 065
  8. PLINABULIN [Concomitant]
     Active Substance: PLINABULIN
     Indication: Neutropenia
     Dosage: 40 MILLIGRAM, AFTER CHEMO (FIXED DOSE ON DAY 1 OF TAC ADMINISTRATIOIN)
     Route: 065
  9. DOCETAXEL [Concomitant]
     Active Substance: DOCETAXEL
     Indication: Breast cancer
     Dosage: 75 MILLIGRAM/SQ. METER, CYCLICAL (21 DAY CYCLES)
     Route: 065
  10. DOCETAXEL [Concomitant]
     Active Substance: DOCETAXEL
     Indication: Non-small cell lung cancer metastatic
  11. DOXORUBICIN [Concomitant]
     Active Substance: DOXORUBICIN
     Indication: Breast cancer
     Dosage: 50 MILLIGRAM/SQ. METER, CYCLICAL
     Route: 065
  12. CYCLOPHOSPHAMIDE [Concomitant]
     Active Substance: CYCLOPHOSPHAMIDE
     Indication: Breast cancer
     Dosage: 50 MILLIGRAM/SQ. METER, CYCLICAL
     Route: 065
  13. CYCLOPHOSPHAMIDE [Concomitant]
     Active Substance: CYCLOPHOSPHAMIDE
     Dosage: 500 MILLIGRAM/SQ. METER, CYCLICAL
     Route: 065

REACTIONS (12)
  - Neutropenia [Unknown]
  - Adverse event [Unknown]
  - Unevaluable event [Unknown]
  - Sepsis [Unknown]
  - Febrile neutropenia [Unknown]
  - Thrombocytopenia [Unknown]
  - Respiratory failure [Fatal]
  - Bone pain [Unknown]
  - Infection [Unknown]
  - Pain [Unknown]
  - Malaise [Unknown]
  - Asthenia [Unknown]
